FAERS Safety Report 8056112-7 (Version None)
Quarter: 2011Q4

REPORT INFORMATION
  Report Type: 
  Country: None (occurrence: None)
  Receive Date: 20111216
  Receipt Date: 20111012
  Transmission Date: 20120403
  Serious: Yes (Other)
  Sender: FDA-Public Use
  Company Number: 304855USA

PATIENT
  Age: 21 Year
  Sex: Female
  Weight: 63.05 kg

DRUGS (1)
  1. PARAGARD T 380A [Suspect]
     Indication: CONTRACEPTION
     Dates: start: 20111012, end: 20111012

REACTIONS (2)
  - COMPLICATION OF DEVICE INSERTION [None]
  - UTERINE PERFORATION [None]
